FAERS Safety Report 4988673-6 (Version None)
Quarter: 2006Q2

REPORT INFORMATION
  Report Type: 
  Country: None (occurrence: None)
  Receive Date: 20060502
  Receipt Date: 20050803
  Transmission Date: 20061013
  Serious: Yes (Hospitalization, Other)
  Sender: FDA-Public Use
  Company Number: CA-MERCK-0508CAN00039

PATIENT
  Age: 50 Year
  Sex: Female
  Weight: 73 kg

DRUGS (9)
  1. VIOXX [Suspect]
     Indication: BACK PAIN
     Route: 048
     Dates: start: 20000601, end: 20020101
  2. VIOXX [Suspect]
     Route: 048
     Dates: start: 20020101, end: 20020101
  3. VIOXX [Suspect]
     Route: 048
     Dates: start: 20020101, end: 20031001
  4. OMEPRAZOLE MAGNESIUM [Concomitant]
     Indication: GASTRIC DISORDER
     Route: 065
     Dates: start: 19860101, end: 20030701
  5. TRIAZOLAM [Concomitant]
     Indication: SLEEP DISORDER
     Route: 065
     Dates: start: 19900314
  6. ACETAMINOPHEN AND CODEINE PHOSPHATE [Concomitant]
     Route: 065
     Dates: start: 19950101
  7. RANITIDINE [Concomitant]
     Route: 065
     Dates: start: 19930101
  8. MEPERIDINE HYDROCHLORIDE [Concomitant]
     Indication: PAIN
     Route: 065
     Dates: start: 19960101
  9. DICLOFENAC SODIUM [Concomitant]
     Indication: MYALGIA
     Route: 065
     Dates: start: 19860101, end: 20000101

REACTIONS (38)
  - ANGINA UNSTABLE [None]
  - ANXIETY [None]
  - AORTIC ARTERIOSCLEROSIS [None]
  - ASTHENIA [None]
  - BACK PAIN [None]
  - BLOOD PRESSURE INCREASED [None]
  - CARDIAC FAILURE CONGESTIVE [None]
  - CARDIAC VALVE DISEASE [None]
  - CHEST DISCOMFORT [None]
  - CHEST PAIN [None]
  - COMA [None]
  - CONVULSION [None]
  - CORONARY ARTERY DISEASE [None]
  - DIARRHOEA [None]
  - DIZZINESS [None]
  - DYSPNOEA [None]
  - EPISTAXIS [None]
  - GASTRITIS [None]
  - HEADACHE [None]
  - HYPERTENSION [None]
  - INJURY [None]
  - JOINT SWELLING [None]
  - MENINGITIS [None]
  - MENINGITIS STAPHYLOCOCCAL [None]
  - MUSCULAR WEAKNESS [None]
  - MYOCARDIAL INFARCTION [None]
  - OEDEMA [None]
  - OEDEMA PERIPHERAL [None]
  - ORGAN FAILURE [None]
  - PALPITATIONS [None]
  - RENAL COLIC [None]
  - RENAL FAILURE ACUTE [None]
  - RENAL FUNCTION TEST ABNORMAL [None]
  - RETROPERITONEAL HAEMORRHAGE [None]
  - SCIATICA [None]
  - SEPTIC SHOCK [None]
  - SWELLING [None]
  - VOMITING [None]
